FAERS Safety Report 7638102-9 (Version None)
Quarter: 2011Q3

REPORT INFORMATION
  Report Type: 
  Country: None (occurrence: None)
  Receive Date: 20110727
  Receipt Date: 20110719
  Transmission Date: 20111222
  Serious: No
  Sender: FDA-Public Use
  Company Number: US-JNJFOC-20110708758

PATIENT
  Sex: Female
  Weight: 63.5 kg

DRUGS (5)
  1. FENTANYL-100 [Suspect]
     Dosage: NDC#UNKNOWN
     Route: 062
     Dates: start: 20110601, end: 20110711
  2. PERCOCET [Concomitant]
     Indication: PAIN
     Route: 048
  3. SOMA [Concomitant]
     Indication: MUSCLE SPASMS
     Dosage: 350MG/TID AS NEEDED
     Route: 048
  4. FENTANYL-100 [Suspect]
     Indication: PRODUCT USED FOR UNKNOWN INDICATION
     Dosage: NDC#UNKNOWN
     Route: 062
     Dates: start: 20101001, end: 20110601
  5. FENTANYL-100 [Suspect]
     Indication: SURGERY
     Dosage: NDC#0781-7240-55
     Route: 062
     Dates: start: 20110711

REACTIONS (3)
  - MUSCLE SPASMS [None]
  - WRONG TECHNIQUE IN DRUG USAGE PROCESS [None]
  - DRUG INEFFECTIVE [None]
